FAERS Safety Report 10420995 (Version 1)
Quarter: 2014Q3

REPORT INFORMATION
  Report Type: Spontaneous
  Country: US (occurrence: None)
  Receive Date: 20140718
  Receipt Date: 20140718
  Transmission Date: 20150326
  Serious: Yes (Other)
  Sender: FDA-Public Use
  Company Number: 1236354

PATIENT
  Age: 51 Year
  Sex: Female

DRUGS (3)
  1. LYRICA [Suspect]
     Active Substance: PREGABALIN
     Indication: NEURALGIA
     Dosage: 100 MG, 2 IN 1 D
     Route: 048
     Dates: end: 2008
  2. TRAMADOL [Concomitant]
     Active Substance: TRAMADOL
  3. KLONOPIN [Suspect]
     Active Substance: CLONAZEPAM
     Indication: CONVULSION
     Dosage: 0.5 MG, 2 IN 1 D
     Route: 048

REACTIONS (2)
  - Drug interaction [None]
  - Depression [None]
